FAERS Safety Report 5695046-X (Version None)
Quarter: 2008Q2

REPORT INFORMATION
  Report Type: 
  Country: None (occurrence: None)
  Receive Date: 20080404
  Receipt Date: 20080326
  Transmission Date: 20081010
  Serious: Yes (Hospitalization, Other)
  Sender: FDA-Public Use
  Company Number: PHEH2008US01402

PATIENT
  Age: 60 Year
  Sex: Female

DRUGS (5)
  1. RECLAST [Suspect]
     Indication: OSTEOPOROSIS
     Dosage: 5 MG ONCE YEARLY
     Route: 042
     Dates: start: 20080122, end: 20080122
  2. HYDROCHLOROTHIAZIDE [Concomitant]
     Dosage: 50 UNK, QD
     Route: 048
  3. ATENOLOL [Concomitant]
     Dosage: 25 UNK, QD
     Route: 048
  4. NEURONTIN [Concomitant]
     Dosage: 900 UNK, QHS
     Route: 048
  5. ESTRADIOL [Concomitant]
     Dosage: 2 MG, QD
     Route: 048

REACTIONS (8)
  - ASTHENIA [None]
  - BACK PAIN [None]
  - DYSPNOEA [None]
  - FLUSHING [None]
  - HEADACHE [None]
  - MALAISE [None]
  - NAUSEA [None]
  - SWELLING FACE [None]
